FAERS Safety Report 5138597-9 (Version None)
Quarter: 2006Q4

REPORT INFORMATION
  Report Type: 
  Country: None (occurrence: None)
  Receive Date: 20061023
  Receipt Date: 20061004
  Transmission Date: 20070319
  Serious: Yes (Other)
  Sender: FDA-Public Use
  Company Number: US200602000225

PATIENT
  Age: 44 Year
  Sex: Male
  Weight: 155.6 kg

DRUGS (5)
  1. ZYPREXA [Suspect]
     Indication: SCHIZOPHRENIA
     Dates: start: 19990301
  2. PROZAC [Concomitant]
  3. BUSPAR [Concomitant]
  4. ABILIFY [Concomitant]
  5. ALTACE [Concomitant]

REACTIONS (8)
  - BLOOD ALKALINE PHOSPHATASE INCREASED [None]
  - BLOOD CREATINE PHOSPHOKINASE INCREASED [None]
  - BLOOD TRIGLYCERIDES INCREASED [None]
  - DIABETES MELLITUS NON-INSULIN-DEPENDENT [None]
  - DIARRHOEA [None]
  - NAUSEA [None]
  - WEIGHT INCREASED [None]
  - WHITE BLOOD CELL COUNT INCREASED [None]
